FAERS Safety Report 6318038-6 (Version None)
Quarter: 2009Q3

REPORT INFORMATION
  Report Type: 
  Country: None (occurrence: None)
  Receive Date: 20090821
  Receipt Date: 20090810
  Transmission Date: 20100115
  Serious: Yes (Hospitalization)
  Sender: FDA-Public Use
  Company Number: KR-PFIZER INC-2009249803

PATIENT
  Age: 46 Year

DRUGS (8)
  1. SUNITINIB MALATE [Suspect]
     Indication: HEPATIC NEOPLASM MALIGNANT
     Dosage: 37.5 MG, 1X/DAY
     Dates: start: 20090616
  2. URSODEOXYCHOLIC ACID [Concomitant]
     Indication: ASPARTATE AMINOTRANSFERASE INCREASED
     Dosage: 10 MG, 3X/DAY
     Route: 048
     Dates: start: 20090615
  3. ZEFFIX [Concomitant]
     Indication: HEPATITIS
     Dosage: 100 MG, DAILY
     Route: 048
     Dates: start: 20090512
  4. OXYCONTIN [Concomitant]
     Indication: MUSCULOSKELETAL PAIN
     Dosage: 20 MG, 2X/DAY
     Route: 048
     Dates: start: 20090615
  5. MEGESTROL [Concomitant]
     Indication: DECREASED APPETITE
     Dosage: 20 ML, DAILY
     Route: 048
     Dates: start: 20090616
  6. ULCERMIN [Concomitant]
     Indication: ABDOMINAL PAIN UPPER
     Dosage: 15 ML, DAILY
     Route: 048
     Dates: start: 20090701
  7. TANTUM VERDE [Concomitant]
     Indication: PROPHYLAXIS
     Dosage: 3X/DAY
     Dates: start: 20090701
  8. POVIDONE-IODINE [Concomitant]
     Indication: PROPHYLAXIS
     Dosage: 3X/DAY
     Dates: start: 20090715

REACTIONS (1)
  - ASCITES [None]
